FAERS Safety Report 5480728-5 (Version None)
Quarter: 2007Q4

REPORT INFORMATION
  Report Type: 
  Country: None (occurrence: None)
  Receive Date: 20071009
  Receipt Date: 20070927
  Transmission Date: 20080405
  Serious: Yes (Hospitalization)
  Sender: FDA-Public Use
  Company Number: US-SANOFI-SYNTHELABO-A03200705806

PATIENT
  Age: 53 Year
  Sex: Male

DRUGS (4)
  1. AVASTIN [Suspect]
     Indication: RECTAL CANCER
     Route: 042
     Dates: start: 20070917, end: 20070917
  2. FLUOROURACIL [Suspect]
     Indication: RECTAL CANCER
     Route: 042
     Dates: start: 20070917, end: 20070917
  3. LEUCOVORIN [Suspect]
     Indication: RECTAL CANCER
     Route: 042
     Dates: start: 20070917, end: 20070917
  4. ELOXATIN [Suspect]
     Indication: RECTAL CANCER
     Route: 042
     Dates: start: 20070917, end: 20070917

REACTIONS (1)
  - MYOCARDIAL INFARCTION [None]
